FAERS Safety Report 9476957 (Version 1)
Quarter: 2013Q3

REPORT INFORMATION
  Report Type: Spontaneous
  Country: CN (occurrence: CN)
  Receive Date: 20130826
  Receipt Date: 20130826
  Transmission Date: 20140515
  Serious: Yes (Other)
  Sender: FDA-Public Use
  Company Number: CN-BAXTER-2013BAX033078

PATIENT
  Sex: Female
  Weight: .89 kg

DRUGS (9)
  1. METRONIDAZOLE [Suspect]
     Indication: FOETAL EXPOSURE TIMING UNSPECIFIED
     Route: 064
  2. MAGNESIUM SULFATE [Suspect]
     Indication: TOCOLYSIS
     Route: 064
  3. NIFEDIPINE [Suspect]
     Indication: TOCOLYSIS
     Route: 064
  4. ATOSIBAN [Suspect]
     Indication: TOCOLYSIS
     Route: 064
  5. ATOSIBAN [Suspect]
     Indication: PREMATURE LABOUR
  6. CEFTRIAXONE [Suspect]
     Indication: GENITAL INFECTION BACTERIAL
     Route: 064
  7. CEFTRIAXONE [Suspect]
     Route: 065
  8. ERYTHROMYCIN [Suspect]
     Indication: UREAPLASMA INFECTION
     Route: 064
  9. DEXAMETHASONE [Suspect]
     Indication: GENITAL INFECTION BACTERIAL
     Route: 064

REACTIONS (2)
  - Premature baby [Recovered/Resolved]
  - Foetal exposure during pregnancy [Recovered/Resolved]
